FAERS Safety Report 9704787 (Version 1)
Quarter: 2013Q4

REPORT INFORMATION
  Report Type: Spontaneous
  Country: US (occurrence: US)
  Receive Date: 20131122
  Receipt Date: 20131122
  Transmission Date: 20140711
  Serious: Yes (Hospitalization)
  Sender: FDA-Public Use
  Company Number: US-SA-2013SA118013

PATIENT
  Age: 43 Year
  Sex: Male

DRUGS (6)
  1. FABRAZYME [Suspect]
     Indication: FABRY^S DISEASE
     Route: 042
     Dates: start: 20030722
  2. ACETAMINOPHEN [Concomitant]
     Indication: PREMEDICATION
  3. BENADRYL [Concomitant]
     Indication: PREMEDICATION
  4. CORTICOSTEROID NOS [Concomitant]
     Indication: PREMEDICATION
  5. LASIX [Concomitant]
     Indication: CARDIAC FIBRILLATION
  6. WARFARIN [Concomitant]

REACTIONS (5)
  - Pulmonary thrombosis [Unknown]
  - Pericardial effusion [Unknown]
  - Pulmonary oedema [Unknown]
  - Dyspnoea [Unknown]
  - Dyspnoea [Unknown]
